FAERS Safety Report 16376761 (Version 1)
Quarter: 2019Q2

REPORT INFORMATION
  Report Type: Spontaneous
  Country: US (occurrence: US)
  Receive Date: 20190531
  Receipt Date: 20190531
  Transmission Date: 20190711
  Serious: Yes (Hospitalization)
  Sender: FDA-Public Use
  Company Number: US-NOVOPROD-664332

PATIENT
  Age: 69 Year
  Sex: Female

DRUGS (1)
  1. OZEMPIC [Suspect]
     Active Substance: SEMAGLUTIDE
     Indication: PRODUCT USED FOR UNKNOWN INDICATION
     Dosage: 2-MONTH SUPPLY (8X RECOMMENDED DOSE) OF HER MEDICATION
     Route: 065

REACTIONS (4)
  - Accidental overdose [Unknown]
  - Blood creatinine increased [Unknown]
  - Chest pain [Recovered/Resolved]
  - Nausea [Unknown]
